FAERS Safety Report 13262726 (Version 4)
Quarter: 2018Q2

REPORT INFORMATION
  Report Type: Spontaneous
  Country: CA (occurrence: CA)
  Receive Date: 20170223
  Receipt Date: 20180608
  Transmission Date: 20180711
  Serious: Yes (Other)
  Sender: FDA-Public Use
  Company Number: CA-ROCHE-1897219

PATIENT
  Age: 52 Year
  Sex: Female

DRUGS (7)
  1. NEORAL [Suspect]
     Active Substance: CYCLOSPORINE
     Indication: PRODUCT USED FOR UNKNOWN INDICATION
     Route: 065
     Dates: start: 2013
  2. REACTINE (CANADA) [Concomitant]
     Active Substance: CETIRIZINE HYDROCHLORIDE
     Indication: PRODUCT USED FOR UNKNOWN INDICATION
     Route: 065
  3. NEORAL [Suspect]
     Active Substance: CYCLOSPORINE
     Route: 065
     Dates: end: 2014
  4. XOLAIR [Suspect]
     Active Substance: OMALIZUMAB
     Indication: CHRONIC SPONTANEOUS URTICARIA
     Route: 058
     Dates: start: 20131126
  5. XOLAIR [Suspect]
     Active Substance: OMALIZUMAB
     Route: 058
  6. NEORAL [Suspect]
     Active Substance: CYCLOSPORINE
     Route: 065
     Dates: start: 20140225
  7. SINGULAIR [Concomitant]
     Active Substance: MONTELUKAST SODIUM
     Indication: PRODUCT USED FOR UNKNOWN INDICATION
     Dosage: AT BED TIME
     Route: 065

REACTIONS (18)
  - Nasopharyngitis [Unknown]
  - Hypersensitivity [Unknown]
  - Food allergy [Unknown]
  - Therapeutic response decreased [Unknown]
  - Feeling hot [Unknown]
  - Cold sweat [Unknown]
  - Pain [Unknown]
  - Abdominal pain [Unknown]
  - Excessive cerumen production [Unknown]
  - Thrombosis [Unknown]
  - Erythema [Unknown]
  - Diarrhoea [Unknown]
  - Urticaria [Recovering/Resolving]
  - Paraesthesia [Unknown]
  - Pruritus [Unknown]
  - Skin plaque [Unknown]
  - Contusion [Unknown]
  - Product preparation error [Unknown]

NARRATIVE: CASE EVENT DATE: 20180415
